FAERS Safety Report 17283333 (Version 1)
Quarter: 2020Q1

REPORT INFORMATION
  Report Type: Spontaneous
  Country: US (occurrence: US)
  Receive Date: 20191227
  Receipt Date: 20191227
  Transmission Date: 20200409
  Serious: No
  Sender: FDA-Public Use
  Company Number: None

PATIENT
  Age: 58 Year
  Sex: Female

DRUGS (3)
  1. VANCOMYCIN HYDROCHLORIDE 1-5MG/200ML-% BAXTER HEALTHCARE CORP [Suspect]
     Active Substance: VANCOMYCIN HYDROCHLORIDE
     Indication: WOUND INFECTION
     Dosage: ?          OTHER STRENGTH:1-5 GM/200ML-%;OTHER FREQUENCY:Q24;?
     Route: 042
     Dates: start: 20191218
  2. CEFEPIME [Concomitant]
     Active Substance: CEFEPIME HYDROCHLORIDE
  3. OCYCOTIN [Concomitant]

REACTIONS (3)
  - Malaise [None]
  - Ear discomfort [None]
  - Infusion related reaction [None]

NARRATIVE: CASE EVENT DATE: 20191218
